FAERS Safety Report 4649244-4 (Version None)
Quarter: 2005Q2

REPORT INFORMATION
  Report Type: 
  Country: None (occurrence: None)
  Receive Date: 20050429
  Receipt Date: 20050418
  Transmission Date: 20051028
  Serious: Yes (Other)
  Sender: FDA-Public Use
  Company Number: PT-JNJFOC-20050206339

PATIENT
  Age: 67 Year
  Sex: Male

DRUGS (7)
  1. REMICADE [Suspect]
     Route: 042
  2. REMICADE [Suspect]
     Route: 042
  3. REMICADE [Suspect]
     Route: 042
  4. REMICADE [Suspect]
     Route: 042
  5. REMICADE [Suspect]
     Indication: CROHN'S DISEASE
     Route: 042
  6. MESSALAZIN [Concomitant]
  7. BUDESONIDE [Concomitant]
     Route: 049

REACTIONS (3)
  - ANAPHYLACTIC REACTION [None]
  - HERPES ZOSTER [None]
  - INFUSION RELATED REACTION [None]
